FAERS Safety Report 22639762 (Version 5)
Quarter: 2023Q4

REPORT INFORMATION
  Report Type: Report from Study
  Country: US (occurrence: US)
  Receive Date: 20230626
  Receipt Date: 20231225
  Transmission Date: 20240109
  Serious: Yes (Hospitalization)
  Sender: FDA-Public Use
  Company Number: US-TAKEDA-2022TUS082765

PATIENT
  Age: 80 Year
  Sex: Male

DRUGS (7)
  1. MOBOCERTINIB [Suspect]
     Active Substance: MOBOCERTINIB
     Indication: Nasal sinus cancer
     Dosage: 120 MILLIGRAM, QD
     Route: 048
     Dates: start: 20221106
  2. MOBOCERTINIB [Suspect]
     Active Substance: MOBOCERTINIB
     Indication: Neoplasm malignant
     Dosage: 80 MILLIGRAM, QD
     Route: 048
  3. MOBOCERTINIB [Suspect]
     Active Substance: MOBOCERTINIB
     Dosage: 120 MILLIGRAM, QD
     Route: 048
     Dates: start: 20231106, end: 20231127
  4. LOPERAMIDE [Concomitant]
     Active Substance: LOPERAMIDE
     Dosage: UNK
     Route: 065
  5. KEPPRA [Concomitant]
     Active Substance: LEVETIRACETAM
     Dosage: UNK
     Route: 065
  6. MAGNESIUM [Concomitant]
     Active Substance: MAGNESIUM
     Dosage: UNK
     Route: 065
  7. DOXAZOSIN [Concomitant]
     Active Substance: DOXAZOSIN MESYLATE
     Dosage: UNK
     Route: 065

REACTIONS (6)
  - Renal disorder [Unknown]
  - Pain [Not Recovered/Not Resolved]
  - Nail discolouration [Recovering/Resolving]
  - Diarrhoea [Not Recovered/Not Resolved]
  - Product dose omission issue [Recovered/Resolved]
  - Off label use [Unknown]

NARRATIVE: CASE EVENT DATE: 20221109
